FAERS Safety Report 14622226 (Version 1)
Quarter: 2018Q1

REPORT INFORMATION
  Report Type: Spontaneous
  Country: GB (occurrence: GB)
  Receive Date: 20180311
  Receipt Date: 20180311
  Transmission Date: 20180509
  Serious: Yes (Hospitalization, Other)
  Sender: FDA-Public Use
  Company Number: GB-DEXPHARM-20180155

PATIENT
  Age: 83 Year
  Sex: Female
  Weight: 73 kg

DRUGS (14)
  1. FEXOFENADINE [Concomitant]
     Active Substance: FEXOFENADINE\FEXOFENADINE HYDROCHLORIDE
     Dates: start: 20140424
  2. MELOXICAM. [Concomitant]
     Active Substance: MELOXICAM
     Dates: start: 20140515
  3. AMLODIPINE [Concomitant]
     Active Substance: AMLODIPINE BESYLATE
     Indication: HYPERTENSION
     Dates: start: 20150223
  4. HYPROMELLOSE [Concomitant]
     Active Substance: HYPROMELLOSES
     Dates: start: 20170307
  5. BENDROFLUMETHIAZIDE [Concomitant]
     Active Substance: BENDROFLUMETHIAZIDE
     Indication: HYPERTENSION
     Dates: start: 20071220
  6. MAGNESIUM HYDROXIDE. [Concomitant]
     Active Substance: MAGNESIUM HYDROXIDE
     Dates: start: 20140306
  7. AMITRIPTYLINE HYDROCHLORIDE. [Concomitant]
     Active Substance: AMITRIPTYLINE HYDROCHLORIDE
     Dates: start: 20060418
  8. LOSARTAN. [Concomitant]
     Active Substance: LOSARTAN
     Dates: start: 20141002
  9. COCODAMOL [Concomitant]
     Active Substance: ACETAMINOPHEN\CODEINE PHOSPHATE
     Indication: PAIN
     Dates: start: 20170307
  10. PRAVASTATIN. [Concomitant]
     Active Substance: PRAVASTATIN
     Indication: HYPERCHOLESTEROLAEMIA
     Dates: start: 20160411
  11. COSMOCOL [Concomitant]
     Dates: start: 20170307
  12. ATENOLOL. [Concomitant]
     Active Substance: ATENOLOL
     Dates: start: 20150223
  13. OMEPRAZOLE. [Suspect]
     Active Substance: OMEPRAZOLE
     Dates: start: 20090406
  14. FYBOGEL [Concomitant]
     Active Substance: PLANTAGO OVATA SEED
     Dates: start: 20060707

REACTIONS (2)
  - Muscle spasms [Recovering/Resolving]
  - Pain in jaw [Recovering/Resolving]

NARRATIVE: CASE EVENT DATE: 20180208
